FAERS Safety Report 6061618-6 (Version None)
Quarter: 2009Q1

REPORT INFORMATION
  Report Type: 
  Country: None (occurrence: None)
  Receive Date: 20090202
  Receipt Date: 20090123
  Transmission Date: 20090719
  Serious: Yes (Death)
  Sender: FDA-Public Use
  Company Number: A0753970A

PATIENT
  Age: 70 Year
  Sex: Male
  Weight: 131.8 kg

DRUGS (5)
  1. AVANDIA [Suspect]
     Indication: DIABETES MELLITUS
     Dosage: 4MG PER DAY
     Route: 048
     Dates: start: 20050815, end: 20060601
  2. LIPITOR [Concomitant]
  3. ADVAIR DISKUS 100/50 [Concomitant]
  4. LISINOPRIL [Concomitant]
  5. FLONASE [Concomitant]

REACTIONS (5)
  - CEREBRAL THROMBOSIS [None]
  - EMOTIONAL DISORDER [None]
  - FALL [None]
  - FLUID RETENTION [None]
  - MYOCARDIAL INFARCTION [None]
